FAERS Safety Report 12951847 (Version 1)
Quarter: 2016Q4

REPORT INFORMATION
  Report Type: Spontaneous
  Country: NL (occurrence: NL)
  Receive Date: 20161117
  Receipt Date: 20161117
  Transmission Date: 20170207
  Serious: Yes (Hospitalization)
  Sender: FDA-Public Use
  Company Number: NL-TEVA-712120ACC

PATIENT
  Age: 71 Year
  Sex: Female
  Weight: 73 kg

DRUGS (6)
  1. PERTUZUMAB INFOPL CONC 30MG/ML [Suspect]
     Active Substance: PERTUZUMAB
     Indication: BREAST CANCER
     Dosage: 1 TIME PER 3 WEEKS 840MG
     Route: 042
     Dates: start: 20160719, end: 20160908
  2. DOCETAXEL INFUUS [Suspect]
     Active Substance: DOCETAXEL
     Indication: BREAST CANCER
     Dosage: 6.6667 MILLIGRAM DAILY; 1 TIME PER 3 WEEKS 140MG
     Route: 042
     Dates: start: 20160719, end: 20160908
  3. CARBOPLATINE INFOPL CONC 10MG/ML [Suspect]
     Active Substance: CARBOPLATIN
     Indication: BREAST CANCER
     Dosage: 1 TIME PER 3 WEEKS 600MG
     Route: 042
     Dates: start: 20160719, end: 20160908
  4. HERCEPTIN [Suspect]
     Active Substance: TRASTUZUMAB
     Indication: BREAST CANCER
     Dosage: 1 TIME PER 3 WEEKS 600MG
     Route: 058
     Dates: start: 20160719, end: 20160930
  5. RIVAROXABAN TABLET 20MG [Concomitant]
     Active Substance: RIVAROXABAN
     Dosage: 20 MILLIGRAM DAILY; 1 TIME PER DAY 1 PIECE(S)
     Route: 048
     Dates: start: 20160825
  6. METOPROLOL TABLET MGA 100MG (SUCCINAAT) [Concomitant]
     Active Substance: METOPROLOL
     Dosage: 100 MILLIGRAM DAILY; 1 TIME PER DAY 1 PIECE(S)
     Route: 048
     Dates: start: 20160824

REACTIONS (1)
  - Psychotic disorder [Recovering/Resolving]

NARRATIVE: CASE EVENT DATE: 20160907
